FAERS Safety Report 4978212-8 (Version None)
Quarter: 2006Q2

REPORT INFORMATION
  Report Type: 
  Country: None (occurrence: None)
  Receive Date: 20060417
  Receipt Date: 20060406
  Transmission Date: 20061013
  Serious: Yes (Hospitalization, Other)
  Sender: FDA-Public Use
  Company Number: 2006047967

PATIENT
  Age: 48 Year
  Sex: Male
  Weight: 104.3273 kg

DRUGS (1)
  1. UNISOME SLEEPGELS (DIPHENHYDRAMINE) [Suspect]
     Indication: DEPRESSION
     Dosage: ONCE, ORAL
     Route: 048
     Dates: start: 20060405, end: 20060405

REACTIONS (2)
  - HALLUCINATION [None]
  - INTENTIONAL OVERDOSE [None]
